FAERS Safety Report 4566298-4 (Version None)
Quarter: 2005Q1

REPORT INFORMATION
  Report Type: 
  Country: None (occurrence: None)
  Receive Date: 20050126
  Receipt Date: 20050126
  Transmission Date: 20050727
  Serious: Yes (Other)
  Sender: FDA-Public Use
  Company Number: None

PATIENT
  Age: 17 Year
  Sex: Female
  Weight: 58.9676 kg

DRUGS (1)
  1. MINOCYCLINE  50 MGS [Suspect]
     Indication: ACNE
     Dosage: 1/DAY   ORAL
     Route: 048
     Dates: start: 20040417, end: 20040912

REACTIONS (5)
  - ANTINUCLEAR ANTIBODY POSITIVE [None]
  - ARTHRALGIA [None]
  - HEPATIC ENZYME INCREASED [None]
  - MUSCLE FATIGUE [None]
  - NO THERAPEUTIC RESPONSE [None]
